FAERS Safety Report 17101959 (Version 1)
Quarter: 2019Q4

REPORT INFORMATION
  Report Type: Spontaneous
  Country: FR (occurrence: FR)
  Receive Date: 20191202
  Receipt Date: 20191202
  Transmission Date: 20200122
  Serious: Yes (Other)
  Sender: FDA-Public Use
  Company Number: FR-MYLANLABS-2019M1116871

PATIENT
  Age: 73 Year
  Sex: Female
  Weight: 65 kg

DRUGS (10)
  1. SKENAN [Concomitant]
     Active Substance: MORPHINE SULFATE
     Indication: CANCER PAIN
     Dosage: 80 MILLIGRAM, QD
     Route: 048
     Dates: start: 201711
  2. AZITHROMYCINE [Concomitant]
     Active Substance: AZITHROMYCIN
     Indication: RESPIRATORY TRACT INFLAMMATION
     Dosage: AZITHROMYCINE 250 MG/J LUNDI-MERCREDI-VENDREDI
     Route: 048
     Dates: start: 201712
  3. FRAXIPARINE [Concomitant]
     Active Substance: NADROPARIN CALCIUM
     Indication: THROMBOSIS PROPHYLAXIS
     Dosage: SOIT 0.3 ML
     Route: 058
  4. SERTRALINE [Suspect]
     Active Substance: SERTRALINE HYDROCHLORIDE
     Indication: ANXIETY
     Dosage: 25 MILLIGRAM, QD
     Route: 048
     Dates: start: 20170519, end: 20180119
  5. PARACETAMOL [Concomitant]
     Active Substance: ACETAMINOPHEN
     Indication: CANCER PAIN
     Dosage: SI BESOIN
     Route: 048
  6. PREGABALINE [Concomitant]
     Active Substance: PREGABALIN
     Indication: CANCER PAIN
     Dosage: 600 MILLIGRAM, QD
     Route: 048
     Dates: start: 2016
  7. ONBREZ BREEZHALER [Concomitant]
     Active Substance: INDACATEROL
     Indication: RESPIRATORY TRACT INFLAMMATION
     Dosage: UNK
     Route: 055
  8. VERSATIS [Concomitant]
     Active Substance: LIDOCAINE
     Indication: CANCER PAIN
     Dosage: 1 DOSAGE FORM, QD
     Route: 003
  9. MOVICOL [Concomitant]
     Active Substance: POLYETHYLENE GLYCOL 3350\POTASSIUM CHLORIDE\SODIUM BICARBONATE\SODIUM CHLORIDE
     Indication: CONSTIPATION
     Dosage: 2 DOSAGE FORM, QD
     Route: 048
  10. TERBUTALINE                        /00199202/ [Concomitant]
     Indication: RESPIRATORY TRACT INFLAMMATION
     Dosage: UNK
     Route: 055

REACTIONS (1)
  - Cholestasis [Recovered/Resolved]

NARRATIVE: CASE EVENT DATE: 20171030
